FAERS Safety Report 6874872-5 (Version None)
Quarter: 2010Q3

REPORT INFORMATION
  Report Type: 
  Country: None (occurrence: None)
  Receive Date: 20100723
  Receipt Date: 20100524
  Transmission Date: 20110219
  Serious: Yes (Other)
  Sender: FDA-Public Use
  Company Number: 20109043

PATIENT
  Sex: Male
  Weight: 61.6 kg

DRUGS (11)
  1. BACLOFEN [Suspect]
     Indication: MUSCLE SPASTICITY
     Dosage: 42 MCG, SCREENING DOSE
  2. LIORESAL [Concomitant]
  3. MYONAL [Concomitant]
  4. DANTRIUM [Concomitant]
  5. TRIPTANOL [Concomitant]
  6. CLONAZEPAM [Concomitant]
  7. DEPAKENE [Concomitant]
  8. HARNAL [Concomitant]
  9. UBRETID [Concomitant]
  10. LOXONIN [Concomitant]
  11. GASTER D [Concomitant]

REACTIONS (2)
  - DYSURIA [None]
  - FAECAL INCONTINENCE [None]
